FAERS Safety Report 5359509-9 (Version None)
Quarter: 2007Q2

REPORT INFORMATION
  Report Type: 
  Country: None (occurrence: None)
  Receive Date: 20070615
  Receipt Date: 20070605
  Transmission Date: 20071010
  Serious: Yes (Other)
  Sender: FDA-Public Use
  Company Number: CA-PFIZER INC-2007047078

PATIENT
  Sex: Female

DRUGS (1)
  1. LYRICA [Suspect]
     Indication: NEURALGIA
     Dosage: DAILY DOSE:225MG
     Route: 048

REACTIONS (5)
  - MUSCULAR WEAKNESS [None]
  - MYALGIA [None]
  - NERVE INJURY [None]
  - NEURALGIA [None]
  - PERONEAL NERVE PALSY [None]
